FAERS Safety Report 9615927 (Version 1)
Quarter: 2013Q4

REPORT INFORMATION
  Report Type: Spontaneous
  Country: US (occurrence: US)
  Receive Date: 20131011
  Receipt Date: 20131011
  Transmission Date: 20140711
  Serious: No
  Sender: FDA-Public Use
  Company Number: US-PURDUE-USA-2013-0098783

PATIENT
  Age: 77 Year
  Sex: Male

DRUGS (3)
  1. BUTRANS [Suspect]
     Indication: BACK PAIN
     Dosage: 20 MCG, UNK
     Route: 062
  2. BUTRANS [Suspect]
     Indication: NEUROPATHY PERIPHERAL
  3. VICODIN [Concomitant]
     Indication: BREAKTHROUGH PAIN
     Dosage: 1-4 TABLETS, PRN
     Route: 048

REACTIONS (4)
  - Application site urticaria [Not Recovered/Not Resolved]
  - Application site erythema [Not Recovered/Not Resolved]
  - Application site pruritus [Not Recovered/Not Resolved]
  - Product adhesion issue [Unknown]
